FAERS Safety Report 19873991 (Version 1)
Quarter: 2021Q3

REPORT INFORMATION
  Report Type: Spontaneous
  Country: JP (occurrence: JP)
  Receive Date: 20210922
  Receipt Date: 20210922
  Transmission Date: 20211014
  Serious: No
  Sender: FDA-Public Use
  Company Number: JP-SA-2021SA309485

PATIENT

DRUGS (1)
  1. CLEXANE [Suspect]
     Active Substance: ENOXAPARIN SODIUM
     Route: 065

REACTIONS (3)
  - Device operational issue [Unknown]
  - Needle issue [Unknown]
  - No adverse event [Unknown]
